FAERS Safety Report 6641455-1 (Version None)
Quarter: 2010Q1

REPORT INFORMATION
  Report Type: 
  Country: None (occurrence: None)
  Receive Date: 20100317
  Receipt Date: 20100317
  Transmission Date: 20100710
  Serious: Yes (Hospitalization)
  Sender: FDA-Public Use
  Company Number: None

PATIENT
  Age: 79 Year
  Sex: Female
  Weight: 92.9874 kg

DRUGS (2)
  1. CEFTRIAXONE [Suspect]
     Indication: PNEUMONIA
     Dosage: 1000 MG ONE IM
     Route: 030
     Dates: start: 20100216, end: 20100216
  2. AZITHROMYCIN [Suspect]
     Indication: PNEUMONIA
     Dosage: 500 MG ONE PO
     Route: 048
     Dates: start: 20100216, end: 20100216

REACTIONS (1)
  - STEVENS-JOHNSON SYNDROME [None]
